FAERS Safety Report 17899815 (Version 1)
Quarter: 2020Q2

REPORT INFORMATION
  Report Type: Spontaneous
  Country: US (occurrence: US)
  Receive Date: 20200615
  Receipt Date: 20200615
  Transmission Date: 20200714
  Serious: No
  Sender: FDA-Public Use
  Company Number: None

PATIENT
  Age: 57 Year
  Sex: Male

DRUGS (2)
  1. TRIAMCINOLONE (TRIAMCINOLONE 40MG/ML INJ, SUSP) [Suspect]
     Active Substance: TRIAMCINOLONE
     Indication: EPICONDYLITIS
     Dates: start: 20200610, end: 20200610
  2. LIDOCAINE (LIDOCAINE HCL 1% INJ) [Suspect]
     Active Substance: LIDOCAINE HYDROCHLORIDE
     Dates: start: 20200610, end: 20200610

REACTIONS (1)
  - Anaphylactic reaction [None]

NARRATIVE: CASE EVENT DATE: 20200610
